FAERS Safety Report 5036901-3 (Version None)
Quarter: 2006Q2

REPORT INFORMATION
  Report Type: 
  Country: None (occurrence: None)
  Receive Date: 20060626
  Receipt Date: 20060613
  Transmission Date: 20061013
  Serious: Yes (Death)
  Sender: FDA-Public Use
  Company Number: CERZ-11250

PATIENT
  Age: 2 Year
  Sex: Male
  Weight: 9.5 kg

DRUGS (1)
  1. CEREZYME [Suspect]
     Indication: GAUCHER'S DISEASE
     Dosage: 60 U/KG Q2WKS IV
     Route: 042
     Dates: start: 20051227, end: 20060307

REACTIONS (4)
  - DISEASE PROGRESSION [None]
  - EPILEPSY [None]
  - NERVOUS SYSTEM DISORDER [None]
  - STATUS EPILEPTICUS [None]
